FAERS Safety Report 10217861 (Version 1)
Quarter: 2014Q2

REPORT INFORMATION
  Report Type: Spontaneous
  Country: CA (occurrence: CA)
  Receive Date: 20140605
  Receipt Date: 20140605
  Transmission Date: 20141212
  Serious: Yes (Other)
  Sender: FDA-Public Use
  Company Number: CA-AMGEN INC.-CANSP2014040065

PATIENT
  Age: 56 Year
  Sex: Female

DRUGS (4)
  1. PROLIA [Suspect]
     Indication: OSTEOPENIA
     Dosage: 60 MG, Q6MO
     Route: 058
     Dates: start: 201110
  2. AVAMYS [Concomitant]
     Dosage: 2 SPRAYS EACH NOSTRIL, QD
     Route: 045
  3. VITAMIN D                          /00107901/ [Concomitant]
     Dosage: 2000 IU, QD
     Route: 065
  4. OMEGA 3                            /01333901/ [Concomitant]
     Dosage: UNK UNK, QD
     Route: 065

REACTIONS (4)
  - Osteomyelitis [Not Recovered/Not Resolved]
  - Local swelling [Not Recovered/Not Resolved]
  - Abscess jaw [Not Recovered/Not Resolved]
  - Dental implantation [Not Recovered/Not Resolved]
